FAERS Safety Report 9045317 (Version 1)
Quarter: 2013Q1

REPORT INFORMATION
  Report Type: Spontaneous
  Country: US (occurrence: US)
  Receive Date: 20130131
  Receipt Date: 20130131
  Transmission Date: 20140127
  Serious: Yes (Other)
  Sender: FDA-Public Use
  Company Number: US-PFIZER INC-2013032379

PATIENT
  Age: 77 Year
  Sex: Female
  Weight: 76.19 kg

DRUGS (1)
  1. TOVIAZ [Suspect]
     Indication: URINARY INCONTINENCE
     Dosage: 4 MG, DAILY
     Dates: start: 20130102

REACTIONS (1)
  - Urinary retention [Unknown]
